FAERS Safety Report 13175158 (Version 1)
Quarter: 2017Q1

REPORT INFORMATION
  Report Type: Spontaneous
  Country: US (occurrence: US)
  Receive Date: 20170201
  Receipt Date: 20170201
  Transmission Date: 20170428
  Serious: No
  Sender: FDA-Public Use
  Company Number: US-ABBVIE-17K-163-1835781-00

PATIENT
  Sex: Female

DRUGS (1)
  1. HUMIRA [Suspect]
     Active Substance: ADALIMUMAB
     Indication: PRODUCT USED FOR UNKNOWN INDICATION
     Route: 058

REACTIONS (8)
  - Drug hypersensitivity [Unknown]
  - Back disorder [Unknown]
  - Rash papular [Unknown]
  - Arthropathy [Unknown]
  - Feeling hot [Unknown]
  - Condition aggravated [Unknown]
  - Skin exfoliation [Unknown]
  - Pruritus allergic [Unknown]
